FAERS Safety Report 18445892 (Version 1)
Quarter: 2020Q4

REPORT INFORMATION
  Report Type: Spontaneous
  Country: US (occurrence: US)
  Receive Date: 20201030
  Receipt Date: 20201030
  Transmission Date: 20210114
  Serious: Yes (Hospitalization)
  Sender: FDA-Public Use
  Company Number: US-ASTRAZENECA-2020SF40085

PATIENT
  Sex: Female
  Weight: 60.3 kg

DRUGS (1)
  1. BRILINTA [Suspect]
     Active Substance: TICAGRELOR
     Indication: MYOCARDIAL INFARCTION
     Route: 048

REACTIONS (5)
  - Vomiting [Unknown]
  - Insomnia [Recovered/Resolved]
  - Body height decreased [Unknown]
  - Diabetes mellitus [Unknown]
  - Fatigue [Unknown]
